FAERS Safety Report 24560881 (Version 3)
Quarter: 2024Q4

REPORT INFORMATION
  Report Type: Spontaneous
  Country: JP (occurrence: JP)
  Receive Date: 20241029
  Receipt Date: 20241118
  Transmission Date: 20250115
  Serious: Yes (Other)
  Sender: GALDERMA
  Company Number: JP-GALDERMA-JP2024015671

PATIENT

DRUGS (3)
  1. NEMOLIZUMAB [Suspect]
     Active Substance: NEMOLIZUMAB
     Indication: Dermatitis atopic
     Dosage: 30 MILLIGRAM, 4 WEEKS
     Route: 058
     Dates: start: 202407, end: 202407
  2. NEMOLIZUMAB [Suspect]
     Active Substance: NEMOLIZUMAB
     Dosage: 30 MILLIGRAM, 4 WEEKS
     Route: 058
     Dates: start: 20240808, end: 20240808
  3. NEMOLIZUMAB [Suspect]
     Active Substance: NEMOLIZUMAB
     Dosage: 30 MILLIGRAM, 4 WEEKS
     Route: 058
     Dates: start: 20240910, end: 20240910

REACTIONS (3)
  - Eczema herpeticum [Not Recovered/Not Resolved]
  - Dermatitis atopic [Unknown]
  - Mycoplasma infection [Unknown]

NARRATIVE: CASE EVENT DATE: 20240101
